FAERS Safety Report 19041582 (Version 3)
Quarter: 2021Q1

REPORT INFORMATION
  Report Type: Spontaneous
  Country: US (occurrence: US)
  Receive Date: 20210323
  Receipt Date: 20210326
  Transmission Date: 20210420
  Serious: Yes (Other)
  Sender: FDA-Public Use
  Company Number: US-BIOGEN-2021BI00986547

PATIENT
  Age: 52 Year
  Sex: Female

DRUGS (5)
  1. PLEGRIDY [Suspect]
     Active Substance: PEGINTERFERON BETA-1A
     Route: 065
     Dates: start: 20210312
  2. PLEGRIDY [Suspect]
     Active Substance: PEGINTERFERON BETA-1A
     Route: 065
     Dates: start: 20190729, end: 202101
  3. PLEGRIDY [Suspect]
     Active Substance: PEGINTERFERON BETA-1A
     Indication: MULTIPLE SCLEROSIS
     Route: 058
     Dates: start: 20190729, end: 20210209
  4. PLEGRIDY [Suspect]
     Active Substance: PEGINTERFERON BETA-1A
     Indication: MULTIPLE SCLEROSIS
     Route: 065
     Dates: start: 20190729, end: 20210126
  5. RESVERATROL [Concomitant]
     Active Substance: DIETARY SUPPLEMENT\RESVERATROL
     Indication: NUTRITIONAL SUPPLEMENTATION
     Route: 065

REACTIONS (10)
  - Gastrointestinal bacterial overgrowth [Unknown]
  - Peripheral swelling [Not Recovered/Not Resolved]
  - Hypertension [Not Recovered/Not Resolved]
  - Neuroma [Recovered/Resolved with Sequelae]
  - Hypersensitivity [Unknown]
  - Small intestinal haemorrhage [Unknown]
  - Dyspnoea [Unknown]
  - Arthropod bite [Unknown]
  - Multiple sclerosis relapse [Unknown]
  - Heart rate increased [Unknown]

NARRATIVE: CASE EVENT DATE: 2020
